FAERS Safety Report 7210489-0 (Version None)
Quarter: 2011Q1

REPORT INFORMATION
  Report Type: 
  Country: None (occurrence: None)
  Receive Date: 20110105
  Receipt Date: 20101222
  Transmission Date: 20110831
  Serious: Yes (Other)
  Sender: FDA-Public Use
  Company Number: GB-ROCHE-727515

PATIENT
  Sex: Male
  Weight: 81 kg

DRUGS (1)
  1. ISOTRETINOIN [Suspect]
     Indication: ACNE
     Route: 048
     Dates: start: 20100622, end: 20100921

REACTIONS (1)
  - ERECTILE DYSFUNCTION [None]
